FAERS Safety Report 5911021-1 (Version None)
Quarter: 2008Q4

REPORT INFORMATION
  Report Type: 
  Country: None (occurrence: None)
  Receive Date: 20081007
  Receipt Date: 20080929
  Transmission Date: 20090506
  Serious: Yes (Death)
  Sender: FDA-Public Use
  Company Number: GB-TEVA-176543ISR

PATIENT
  Sex: Female

DRUGS (5)
  1. AZILECT [Suspect]
     Indication: PARKINSON'S DISEASE
     Route: 048
     Dates: start: 20060101
  2. AMITRIPTYLINE HCL [Suspect]
     Indication: NEURALGIA
     Route: 048
     Dates: start: 20061209
  3. MADOPAR [Concomitant]
  4. CYCLIZINE [Concomitant]
     Indication: PAIN
     Route: 042
  5. MORPHINE [Concomitant]
     Indication: PAIN

REACTIONS (6)
  - CONFUSIONAL STATE [None]
  - DYSKINESIA [None]
  - HYPOTENSION [None]
  - METABOLIC ACIDOSIS [None]
  - PAIN [None]
  - TACHYCARDIA [None]
